FAERS Safety Report 6388399-0 (Version None)
Quarter: 2009Q4

REPORT INFORMATION
  Report Type: 
  Country: None (occurrence: None)
  Receive Date: 20091005
  Receipt Date: 20090924
  Transmission Date: 20100525
  Serious: Yes (Hospitalization, Other)
  Sender: FDA-Public Use
  Company Number: US-ASTRAZENECA-2009SE15213

PATIENT
  Age: 57 Year
  Sex: Female
  Weight: 49.9 kg

DRUGS (7)
  1. SYMBICORT [Suspect]
     Dosage: 160, 1 PUFF
     Route: 055
     Dates: start: 20080401, end: 20080401
  2. SYMBICORT [Suspect]
     Dosage: 320 MCG (160, 2 PUFFS)
     Route: 055
     Dates: start: 20090706, end: 20090706
  3. PULMICORT [Suspect]
     Route: 055
  4. NEXIUM [Concomitant]
  5. FLONASE [Concomitant]
  6. OPTIVAR [Concomitant]
  7. VAGIFEM [Concomitant]

REACTIONS (8)
  - CHEST DISCOMFORT [None]
  - CHEST PAIN [None]
  - CONVULSION [None]
  - DEPRESSED LEVEL OF CONSCIOUSNESS [None]
  - NAUSEA [None]
  - PARALYSIS [None]
  - TACHYCARDIA [None]
  - TREMOR [None]
